FAERS Safety Report 15420413 (Version 2)
Quarter: 2019Q1

REPORT INFORMATION
  Report Type: Spontaneous
  Country: JP (occurrence: JP)
  Receive Date: 20180924
  Receipt Date: 20190111
  Transmission Date: 20190417
  Serious: Yes (Other)
  Sender: FDA-Public Use
  Company Number: JP-CELGENEUS-JPN-20180907331

PATIENT
  Age: 65 Year
  Sex: Female

DRUGS (1)
  1. REVLIMID [Suspect]
     Active Substance: LENALIDOMIDE
     Indication: ADULT T-CELL LYMPHOMA/LEUKAEMIA
     Dosage: UNKNOWN
     Route: 048
     Dates: end: 2017

REACTIONS (2)
  - Organising pneumonia [Recovering/Resolving]
  - Organising pneumonia [Recovering/Resolving]

NARRATIVE: CASE EVENT DATE: 2017
